FAERS Safety Report 7733648 (Version 4)
Quarter: 2012Q4

REPORT INFORMATION
  Report Type: Spontaneous
  Country: JP (occurrence: None)
  Receive Date: 20101126
  Receipt Date: 20120814
  Transmission Date: 20130627
  Serious: Yes (Death)
  Sender: FDA-Public Use
  Company Number: 2010JP006714

PATIENT
  Age: 64 Year
  Sex: Male
  Weight: 74 kg

DRUGS (30)
  1. TACROLIMUS [Suspect]
     Indication: COLITIS ULCERATIVE
     Dosage: SEE IMAGE
     Route: 048
     Dates: start: 20100902, end: 20100915
  2. TACROLIMUS [Suspect]
     Indication: COLITIS ULCERATIVE
     Dosage: SEE IMAGE
     Route: 048
     Dates: start: 20100902, end: 20100915
  3. TACROLIMUS [Suspect]
     Indication: COLITIS ULCERATIVE
     Dosage: SEE IMAGE
     Route: 048
     Dates: start: 20100916, end: 20100920
  4. TACROLIMUS [Suspect]
     Indication: COLITIS ULCERATIVE
     Dosage: SEE IMAGE
     Route: 048
     Dates: start: 20100916, end: 20100920
  5. TACROLIMUS [Suspect]
     Indication: COLITIS ULCERATIVE
     Dosage: SEE IMAGE
     Route: 048
     Dates: start: 20100921, end: 20100925
  6. TACROLIMUS [Suspect]
     Indication: COLITIS ULCERATIVE
     Dosage: SEE IMAGE
     Route: 048
     Dates: start: 20100921, end: 20100925
  7. TACROLIMUS [Suspect]
     Indication: COLITIS ULCERATIVE
     Dosage: SEE IMAGE
     Route: 048
     Dates: start: 20100926, end: 20100930
  8. TACROLIMUS [Suspect]
     Indication: COLITIS ULCERATIVE
     Dosage: SEE IMAGE
     Route: 048
     Dates: start: 20100926, end: 20100930
  9. TACROLIMUS [Suspect]
     Indication: COLITIS ULCERATIVE
     Dosage: SEE IMAGE
     Route: 048
     Dates: start: 20101001, end: 20101012
  10. TACROLIMUS [Suspect]
     Indication: COLITIS ULCERATIVE
     Dosage: SEE IMAGE
     Route: 048
     Dates: start: 20101001, end: 20101012
  11. TACROLIMUS [Suspect]
     Indication: COLITIS ULCERATIVE
     Dosage: SEE IMAGE
     Route: 048
     Dates: start: 20101013, end: 20101018
  12. TACROLIMUS [Suspect]
     Indication: COLITIS ULCERATIVE
     Dosage: SEE IMAGE
     Route: 048
     Dates: start: 20101013, end: 20101018
  13. REMICADE [Suspect]
     Indication: COLITIS ULCERATIVE
     Dosage: 300 MG, /D, IV NOS ; 300 MG, /D IV NOS
     Route: 040
     Dates: start: 20100927, end: 20100927
  14. REMICADE [Suspect]
     Dosage: 300 MG, /D, IV NOS ; 300 MG, /D IV NOS
     Route: 040
     Dates: start: 20100927, end: 20100927
  15. REMICADE [Suspect]
     Indication: COLITIS ULCERATIVE
     Dosage: 300 MG, /D, IV NOS ; 300 MG, /D IV NOS
     Route: 040
     Dates: start: 20101012, end: 20101012
  16. REMICADE [Suspect]
     Dosage: 300 MG, /D, IV NOS ; 300 MG, /D IV NOS
     Route: 040
     Dates: start: 20101012, end: 20101012
  17. PREDNISOLONE [Suspect]
     Indication: COLITIS ULCERATIVE
     Dosage: 40 MG, /D ; 60 MG , /D ; 50 MG, /D ; 40 MG, /D ; 30 MG, /D ; 20 MG, /D
     Dates: start: 20100830, end: 20100904
  18. PREDNISOLONE [Suspect]
     Dosage: 40 MG, /D ; 60 MG , /D ; 50 MG, /D ; 40 MG, /D ; 30 MG, /D ; 20 MG, /D
     Dates: start: 20100830, end: 20100904
  19. PREDNISOLONE [Suspect]
     Indication: COLITIS ULCERATIVE
     Dosage: 40 MG, /D ; 60 MG , /D ; 50 MG, /D ; 40 MG, /D ; 30 MG, /D ; 20 MG, /D
     Dates: start: 20100905, end: 20100918
  20. PREDNISOLONE [Suspect]
     Dosage: 40 MG, /D ; 60 MG , /D ; 50 MG, /D ; 40 MG, /D ; 30 MG, /D ; 20 MG, /D
     Dates: start: 20100905, end: 20100918
  21. PREDNISOLONE [Suspect]
     Indication: COLITIS ULCERATIVE
     Dosage: 40 MG, /D ; 60 MG , /D ; 50 MG, /D ; 40 MG, /D ; 30 MG, /D ; 20 MG, /D
     Dates: start: 20100919, end: 20101002
  22. PREDNISOLONE [Suspect]
     Dosage: 40 MG, /D ; 60 MG , /D ; 50 MG, /D ; 40 MG, /D ; 30 MG, /D ; 20 MG, /D
     Dates: start: 20100919, end: 20101002
  23. PREDNISOLONE [Suspect]
     Indication: COLITIS ULCERATIVE
     Dosage: 40 MG, /D ; 60 MG , /D ; 50 MG, /D ; 40 MG, /D ; 30 MG, /D ; 20 MG, /D
     Dates: start: 20101003, end: 20101016
  24. PREDNISOLONE [Suspect]
     Dosage: 40 MG, /D ; 60 MG , /D ; 50 MG, /D ; 40 MG, /D ; 30 MG, /D ; 20 MG, /D
     Dates: start: 20101003, end: 20101016
  25. PREDNISOLONE [Suspect]
     Indication: COLITIS ULCERATIVE
     Dosage: 40 MG, /D ; 60 MG , /D ; 50 MG, /D ; 40 MG, /D ; 30 MG, /D ; 20 MG, /D
     Dates: start: 20101017, end: 20101023
  26. PREDNISOLONE [Suspect]
     Dosage: 40 MG, /D ; 60 MG , /D ; 50 MG, /D ; 40 MG, /D ; 30 MG, /D ; 20 MG, /D
     Dates: start: 20101017, end: 20101023
  27. PREDNISOLONE [Suspect]
     Indication: COLITIS ULCERATIVE
     Dosage: 40 MG, /D ; 60 MG , /D ; 50 MG, /D ; 40 MG, /D ; 30 MG, /D ; 20 MG, /D
     Dates: start: 20101024, end: 20101029
  28. PREDNISOLONE [Suspect]
     Dosage: 40 MG, /D ; 60 MG , /D ; 50 MG, /D ; 40 MG, /D ; 30 MG, /D ; 20 MG, /D
     Dates: start: 20101024, end: 20101029
  29. PENTASA [Concomitant]
  30. TAKEPRON (LANSOPRAZOLE) [Concomitant]

REACTIONS (3)
  - Pneumonia [None]
  - Drug level increased [None]
  - No therapeutic response [None]
